FAERS Safety Report 6195435-3 (Version None)
Quarter: 2009Q2

REPORT INFORMATION
  Report Type: 
  Country: None (occurrence: None)
  Receive Date: 20090515
  Receipt Date: 20090430
  Transmission Date: 20091009
  Serious: Yes (Congenital Anomaly, Other)
  Sender: FDA-Public Use
  Company Number: CTI_01010_2009

PATIENT

DRUGS (1)
  1. ZYFLO [Suspect]
     Indication: DRUG USE FOR UNKNOWN INDICATION
     Dosage: PRENATAL EXPOSURE

REACTIONS (4)
  - CLEFT LIP [None]
  - CONGENITAL ANOMALY [None]
  - MATERNAL DRUGS AFFECTING FOETUS [None]
  - UNEVALUABLE EVENT [None]
